FAERS Safety Report 19504920 (Version 1)
Quarter: 2021Q3

REPORT INFORMATION
  Report Type: Spontaneous
  Country: DE (occurrence: DE)
  Receive Date: 20210708
  Receipt Date: 20210708
  Transmission Date: 20211014
  Serious: Yes (Hospitalization)
  Sender: FDA-Public Use
  Company Number: DE-SUN PHARMACEUTICAL INDUSTRIES LTD-2021RR-303293

PATIENT
  Age: 78 Year
  Sex: Male
  Weight: 88.4 kg

DRUGS (15)
  1. TORASEMID [Concomitant]
     Active Substance: TORSEMIDE
     Indication: PRODUCT USED FOR UNKNOWN INDICATION
     Dosage: 40 MG, 1?0?0?0, TABLETS ()
     Route: 048
  2. METOPROLOL. [Concomitant]
     Active Substance: METOPROLOL
     Indication: PRODUCT USED FOR UNKNOWN INDICATION
     Dosage: 23.75 MG, 1?0?1?0, PROLONGED?RELEASE TABLETS ()
     Route: 048
  3. PANKREAS?PULVER VOM SCHWEIN [Concomitant]
     Indication: PRODUCT USED FOR UNKNOWN INDICATION
     Dosage: 25000 IU, 1?1?1?0, CAPSULES ()
     Route: 048
  4. CETIRIZIN [Concomitant]
     Active Substance: CETIRIZINE HYDROCHLORIDE
     Indication: PRODUCT USED FOR UNKNOWN INDICATION
     Dosage: 10 MG, IF NECESSARY, TABLETS ()
     Route: 048
  5. GEMCITABINE. [Suspect]
     Active Substance: GEMCITABINE
     Indication: PRODUCT USED FOR UNKNOWN INDICATION
     Dosage: ACCORDING TO SCHEME, INJECTION / INFUSION SOLUTION ()
     Route: 042
  6. INSULIN LISPRO [Suspect]
     Active Substance: INSULIN LISPRO
     Indication: PRODUCT USED FOR UNKNOWN INDICATION
     Dosage: ACCORDING TO SCHEME, INJECTION / INFUSION SOLUTION ()
     Route: 058
  7. COLECALCIFEROL (VITAMIN D) [Concomitant]
     Active Substance: CHOLECALCIFEROL
     Indication: PRODUCT USED FOR UNKNOWN INDICATION
     Dosage: 20000 IU, ONCE A WEEK, CAPSULES ()
     Route: 048
  8. METAMIZOL [Concomitant]
     Active Substance: METAMIZOLE SODIUM
     Indication: PRODUCT USED FOR UNKNOWN INDICATION
     Dosage: 1 G, 1?1?1?1, TABLETS ()
     Route: 048
  9. TINZAPARIN [Concomitant]
     Active Substance: TINZAPARIN
     Indication: PRODUCT USED FOR UNKNOWN INDICATION
     Dosage: 14000 / 0.7 IU / ML, 1?0?0?0, SOLUTION FOR INJECTION / INFUSION ()
     Route: 058
  10. ALLOPURINOL. [Concomitant]
     Active Substance: ALLOPURINOL
     Indication: PRODUCT USED FOR UNKNOWN INDICATION
     Dosage: 300 MG, 0.5?0?0?0, TABLETS ()
     Route: 048
  11. GLYCOPYRRONIUMBROMID/INDACATEROL [Concomitant]
     Indication: PRODUCT USED FOR UNKNOWN INDICATION
     Dosage: 85 | 43 ?G, 1?0?0?0, METERED DOSE INHALER ()
     Route: 055
  12. PANTOPRAZOL [Concomitant]
     Active Substance: PANTOPRAZOLE SODIUM
     Indication: PRODUCT USED FOR UNKNOWN INDICATION
     Dosage: 40 MG, 1?0?0?0, TABLETS ()
     Route: 048
  13. PACLITAXEL. [Suspect]
     Active Substance: PACLITAXEL
     Indication: PRODUCT USED FOR UNKNOWN INDICATION
     Dosage: ACCORDING TO SCHEME, INJECTION / INFUSION SOLUTION ()
     Route: 042
  14. INSULIN GLARGIN [Suspect]
     Active Substance: INSULIN GLARGINE
     Indication: PRODUCT USED FOR UNKNOWN INDICATION
     Dosage: 24 IU, 0?0?0?1, SOLUTION FOR INJECTION / INFUSION ()
     Route: 058
  15. NALOXON/TILIDIN [Concomitant]
     Active Substance: NALOXONE HYDROCHLORIDE\TILIDINE HYDROCHLORIDE
     Indication: PRODUCT USED FOR UNKNOWN INDICATION
     Dosage: 8 | 100 MG, 1?0?1?0, TABLETS ()
     Route: 048

REACTIONS (5)
  - Diarrhoea [Unknown]
  - Fatigue [Unknown]
  - General physical health deterioration [Unknown]
  - Night sweats [Unknown]
  - Medication error [Unknown]
